FAERS Safety Report 8049827-8 (Version None)
Quarter: 2012Q1

REPORT INFORMATION
  Report Type: 
  Country: None (occurrence: None)
  Receive Date: 20120117
  Receipt Date: 20120106
  Transmission Date: 20120608
  Serious: Yes (Hospitalization)
  Sender: FDA-Public Use
  Company Number: AU-ROCHE-751167

PATIENT
  Sex: Female
  Weight: 74 kg

DRUGS (13)
  1. MABTHERA [Suspect]
     Indication: B-CELL LYMPHOMA
     Dosage: ROUTE: IVINF, DOSE FORM: LIQUID, INTERRUPTED
     Route: 042
     Dates: start: 20101021, end: 20101217
  2. MABTHERA [Suspect]
     Route: 042
  3. CYCLOPHOSPHAMIDE [Suspect]
     Route: 042
  4. VINCRISTINE [Suspect]
     Indication: B-CELL LYMPHOMA
     Dosage: ROUTE: IVINF, DOSE FORM: LIQUID, ONCE EVERY 21 DAYS, INTERRUPTED
     Route: 042
     Dates: start: 20101028, end: 20101217
  5. PEGFILGRASTIM [Concomitant]
     Dates: start: 20101218, end: 20101218
  6. GRANISETRON [Concomitant]
     Dates: start: 20101217, end: 20101219
  7. ESOMEPRAZOLE SODIUM [Concomitant]
  8. CYCLOPHOSPHAMIDE [Suspect]
     Indication: B-CELL LYMPHOMA
     Dosage: ROUTE: IVINF, DOSE FORM: LIQUID, ONCE EVERY 21 DAYS, INTERRUPTED
     Route: 042
     Dates: start: 20101028, end: 20101217
  9. PREDNISOLONE [Suspect]
     Route: 048
  10. PREDNISOLONE [Suspect]
     Indication: B-CELL LYMPHOMA
     Dosage: FREQUENCY: DAY 1 TO 5, 21 DAYS CYCLES, INTERRUPTED
     Route: 048
     Dates: start: 20101028, end: 20101217
  11. APREPITANT [Concomitant]
     Dates: start: 20101218, end: 20101220
  12. DOXYCYCLINE [Concomitant]
     Dates: start: 20101217, end: 20101222
  13. VINCRISTINE [Suspect]
     Route: 042

REACTIONS (2)
  - FEBRILE NEUTROPENIA [None]
  - LIVER FUNCTION TEST ABNORMAL [None]
